FAERS Safety Report 8801853 (Version 2)
Quarter: 2015Q2

REPORT INFORMATION
  Report Type: Report from Study
  Country: US (occurrence: US)
  Receive Date: 20120921
  Receipt Date: 20150616
  Transmission Date: 20150821
  Serious: Yes (Death)
  Sender: FDA-Public Use
  Company Number: US-ROCHE-1122998

PATIENT
  Sex: Male
  Weight: 85.4 kg

DRUGS (4)
  1. AVASTIN [Suspect]
     Active Substance: BEVACIZUMAB
     Indication: BRAIN NEOPLASM MALIGNANT
     Route: 042
     Dates: start: 20050728
  2. IRINOTECAN [Concomitant]
     Active Substance: IRINOTECAN
     Route: 042
  3. ATROPINE [Concomitant]
     Active Substance: ATROPINE
     Route: 042
  4. GRANISETRON [Concomitant]
     Active Substance: GRANISETRON
     Route: 048

REACTIONS (2)
  - Off label use [Unknown]
  - Death [Fatal]
